FAERS Safety Report 8594426-2 (Version None)
Quarter: 2012Q3

REPORT INFORMATION
  Report Type: 
  Country: None (occurrence: None)
  Receive Date: 20120815
  Receipt Date: 20120807
  Transmission Date: 20120928
  Serious: No
  Sender: FDA-Public Use
  Company Number: US-BIOGENIDEC-2012BI030048

PATIENT
  Sex: Female

DRUGS (2)
  1. AVONEX [Suspect]
     Indication: MULTIPLE SCLEROSIS
     Route: 030
  2. AVONEX [Suspect]
     Route: 030
     Dates: start: 20050101, end: 20111007

REACTIONS (10)
  - OCULAR HYPERAEMIA [None]
  - ANXIETY [None]
  - MUSCLE ATROPHY [None]
  - WEIGHT DECREASED [None]
  - DEPRESSION [None]
  - VOMITING [None]
  - GENERAL PHYSICAL HEALTH DETERIORATION [None]
  - RASH [None]
  - PARANOIA [None]
  - BLOOD GLUCOSE DECREASED [None]
